FAERS Safety Report 12178001 (Version 2)
Quarter: 2016Q1

REPORT INFORMATION
  Report Type: Spontaneous
  Country: FR (occurrence: FR)
  Receive Date: 20160314
  Receipt Date: 20160321
  Transmission Date: 20160526
  Serious: Yes (Other)
  Sender: FDA-Public Use
  Company Number: FR-PFIZER INC-2016145058

PATIENT
  Age: 4 Year
  Sex: Male
  Weight: 15 kg

DRUGS (22)
  1. LASILIX /00032601/ [Concomitant]
     Active Substance: FUROSEMIDE
     Dosage: 2 INJECTIONS
     Dates: start: 201410, end: 201410
  2. SIKLOS [Concomitant]
     Active Substance: HYDROXYUREA
     Dosage: 300 MG, DAILY
  3. MORPHINE [Concomitant]
     Active Substance: MORPHINE
     Indication: ANALGESIC THERAPY
     Dosage: 33 UG/KG, ONCE PER HOUR
     Route: 042
     Dates: start: 20141009
  4. PARACETAMOL [Concomitant]
     Active Substance: ACETAMINOPHEN
     Indication: ANALGESIC THERAPY
     Dosage: UNK
  5. BUDESONIDE. [Concomitant]
     Active Substance: BUDESONIDE
     Dosage: 1 MG EACH 12 HOURS
     Route: 055
     Dates: start: 201410
  6. GENTAMICIN. [Concomitant]
     Active Substance: GENTAMICIN
     Indication: INFECTION
     Dosage: 3 INJECTIONS
     Dates: start: 201410, end: 201410
  7. TRACRIUM [Concomitant]
     Active Substance: ATRACURIUM BESYLATE
     Indication: NEUROMUSCULAR BLOCKING THERAPY
     Dosage: 0.6 MG/KG, ONCE PER HOUR
     Route: 042
     Dates: start: 20141010, end: 20141012
  8. CLAFORAN [Concomitant]
     Active Substance: CEFOTAXIME SODIUM
     Indication: PYREXIA
     Dosage: UNK
     Route: 042
     Dates: start: 201410
  9. ACUPAN [Concomitant]
     Active Substance: NEFOPAM HYDROCHLORIDE
     Indication: ANALGESIC THERAPY
     Dosage: 2 MG/KG, ONCE PER HOUR
     Route: 042
     Dates: start: 201410, end: 20141012
  10. MIDAZOLAM [Concomitant]
     Active Substance: MIDAZOLAM\MIDAZOLAM HYDROCHLORIDE
     Indication: SEDATION
     Dosage: UP TO 80 UG/KG/HOUR
     Route: 042
     Dates: start: 201410, end: 20151015
  11. ORACILLINE /00001801/ [Concomitant]
     Active Substance: PENICILLIN V
     Dosage: 500000 IU, 2X/DAY
  12. MORPHINE [Concomitant]
     Active Substance: MORPHINE
     Dosage: 40 UG/KG, UNK
     Route: 040
     Dates: start: 20141009
  13. FLIXOTIDE [Concomitant]
     Active Substance: FLUTICASONE PROPIONATE
     Dosage: 50 UG ONE PUFF IN THE MORNING AND IN THE EVENING
  14. LASILIX /00032601/ [Concomitant]
     Active Substance: FUROSEMIDE
     Dosage: UNK
  15. SPECIAFOLDINE [Concomitant]
     Active Substance: FOLIC ACID
     Dosage: 5 MG, DAILY
  16. ZITHROMAX [Suspect]
     Active Substance: AZITHROMYCIN DIHYDRATE
     Indication: INFECTION
     Dosage: UNK
     Route: 042
     Dates: start: 20141010, end: 20141014
  17. CATAPRESSAN /00171101/ [Suspect]
     Active Substance: CLONIDINE
     Indication: SEDATION
     Dosage: 1 UG/KG/HOUR
     Route: 042
     Dates: start: 201410, end: 20141014
  18. ATROVENT [Suspect]
     Active Substance: IPRATROPIUM BROMIDE
     Indication: RHINITIS
     Dosage: ONE PUFF EACH 8 HOURS (3 DAILY)
     Route: 055
     Dates: start: 201410, end: 20141015
  19. AERIUS [Concomitant]
     Active Substance: DESLORATADINE
     Dosage: ONE MEASURE SPOON DAILY
     Route: 048
  20. VENTOLINE /00139501/ [Concomitant]
     Active Substance: ALBUTEROL
     Indication: ASTHMA
     Dosage: 2 DF, 2X/DAY
     Route: 055
  21. ORAMORPH [Concomitant]
     Active Substance: MORPHINE SULFATE
     Indication: PAIN
     Dosage: UNK
     Dates: start: 20141009
  22. AMOXICILLIN. [Concomitant]
     Active Substance: AMOXICILLIN
     Dosage: UNK
     Dates: start: 201410

REACTIONS (1)
  - Atrioventricular block second degree [Recovered/Resolved]

NARRATIVE: CASE EVENT DATE: 20141014
